FAERS Safety Report 16352575 (Version 1)
Quarter: 2019Q2

REPORT INFORMATION
  Report Type: Spontaneous
  Country: DE (occurrence: DE)
  Receive Date: 20190524
  Receipt Date: 20190524
  Transmission Date: 20190711
  Serious: Yes (Hospitalization, Other)
  Sender: FDA-Public Use
  Company Number: DE-AUROBINDO-AUR-APL-2018-024631

PATIENT

DRUGS (36)
  1. IRINOTECAN [Suspect]
     Active Substance: IRINOTECAN
     Indication: COLON CANCER METASTATIC
     Dosage: 196.2 MILLIGRAM, 2 WEEK
     Route: 042
     Dates: start: 20151123
  2. DEXAMETHASON [Concomitant]
     Active Substance: DEXAMETHASONE
     Indication: VOMITING
     Dosage: UNK
     Route: 065
  3. CEFUROXIM [Concomitant]
     Active Substance: CEFUROXIME
     Indication: PRODUCT USED FOR UNKNOWN INDICATION
     Dosage: 500 MILLIGRAM, ONCE A DAY
     Route: 048
     Dates: start: 20151127, end: 20151202
  4. FLUOROURACIL. [Suspect]
     Active Substance: FLUOROURACIL
     Dosage: 2862 MILLIGRAM
     Route: 041
     Dates: start: 20151207
  5. KALINOR [Concomitant]
     Indication: HYPOKALAEMIA
     Dosage: 40 MILLIMOLE, ONCE A DAY
     Route: 048
     Dates: start: 20151207, end: 20151207
  6. ZOMETA [Concomitant]
     Active Substance: ZOLEDRONIC ACID
     Indication: METASTASES TO BONE
     Dosage: 4 MILLIGRAM, 4 WEEK
     Route: 042
     Dates: start: 20151123
  7. BEVACIZUMAB. [Suspect]
     Active Substance: BEVACIZUMAB
     Indication: COLON CANCER METASTATIC
     Dosage: 5 MILLIGRAM/KILOGRAM, 2 WEEK
     Route: 042
     Dates: start: 201512
  8. BEVACIZUMAB. [Suspect]
     Active Substance: BEVACIZUMAB
     Dosage: 255 MILLIGRAM, 2 WEEK
     Route: 042
     Dates: start: 20160201
  9. FLUOROURACIL. [Suspect]
     Active Substance: FLUOROURACIL
     Indication: PRODUCT USED FOR UNKNOWN INDICATION
     Dosage: 2616 MILLIGRAM, 2 WEEKS
     Route: 041
     Dates: start: 20151123
  10. ONDANSETRON [Concomitant]
     Active Substance: ONDANSETRON
     Indication: NAUSEA
     Dosage: 8 MILLIGRAM, 2 WEEK
     Route: 042
     Dates: start: 20151123, end: 20151123
  11. NOVALGIN (METAMIZOLE SODIUM) [Concomitant]
     Active Substance: METAMIZOLE SODIUM
     Indication: PAIN
     Dosage: DROPS
     Route: 048
     Dates: start: 20151026, end: 20151207
  12. OMEPRAZOL [Concomitant]
     Active Substance: OMEPRAZOLE
     Indication: GASTRITIS
     Dosage: 40 MILLIGRAM, ONCE A DAY
     Route: 048
     Dates: start: 20151026, end: 20160330
  13. MACROGOL [Concomitant]
     Active Substance: POLYETHYLENE GLYCOLS
     Indication: FAECES HARD
     Dosage: 13 GRAM
     Route: 048
     Dates: start: 20160104
  14. OXALIPLATIN. [Suspect]
     Active Substance: OXALIPLATIN
     Dosage: 135.15 MILLIGRAM, 2 WEEK
     Route: 042
     Dates: start: 20160329
  15. IRINOTECAN [Suspect]
     Active Substance: IRINOTECAN
     Dosage: 214.65 MILLIGRAM, 2 WEEK
     Route: 042
     Dates: start: 20151207
  16. FLUOROURACIL. [Suspect]
     Active Substance: FLUOROURACIL
     Indication: COLON CANCER METASTATIC
     Dosage: 436 MILLIGRAM, 2 WEEK
     Route: 040
     Dates: start: 20151123
  17. FLUOROURACIL. [Suspect]
     Active Substance: FLUOROURACIL
     Dosage: 477 MILLIGRAM, 2 WEEK
     Route: 040
     Dates: start: 20151207
  18. MCP [Concomitant]
     Active Substance: METOCLOPRAMIDE HYDROCHLORIDE
     Indication: VOMITING
     Dosage: 10 MILLIGRAM,AS REQUIRED
     Route: 048
     Dates: start: 20151123
  19. MCP [Concomitant]
     Active Substance: METOCLOPRAMIDE HYDROCHLORIDE
     Dosage: 10 MILLIGRAM
     Route: 042
     Dates: start: 20160330, end: 20160408
  20. MCP [Concomitant]
     Active Substance: METOCLOPRAMIDE HYDROCHLORIDE
     Dosage: 10 MILLIGRAM
     Route: 042
     Dates: start: 20160408
  21. NIFEDIPIN [Concomitant]
     Active Substance: NIFEDIPINE
     Indication: HYPERTENSION
     Dosage: 10 MILLIGRAM, ONCE A DAY
     Route: 048
     Dates: start: 20151221, end: 20151221
  22. FOLINIC ACID [Concomitant]
     Active Substance: LEUCOVORIN
     Dosage: 636 MILLIGRAM, 2 WEEK
     Route: 042
     Dates: start: 20151207, end: 20160329
  23. ONDANSETRON [Concomitant]
     Active Substance: ONDANSETRON
     Indication: VOMITING
     Dosage: 8 MILLIGRAM, PER CYCLE
     Route: 042
     Dates: start: 20151124, end: 20151127
  24. MCP [Concomitant]
     Active Substance: METOCLOPRAMIDE HYDROCHLORIDE
     Indication: NAUSEA
     Dosage: 30 MILLIGRAM, ONCE A DAY
     Route: 042
     Dates: start: 20151124, end: 20151127
  25. FOLINIC ACID [Concomitant]
     Active Substance: LEUCOVORIN
     Indication: COLON CANCER METASTATIC
     Dosage: 436 MILLIGRAM, 2 WEEK
     Route: 042
     Dates: start: 20151123, end: 20151123
  26. OMEPRAZOL [Concomitant]
     Active Substance: OMEPRAZOLE
     Indication: VOMITING
     Dosage: 80 MILLIGRAM, ONCE A DAY
     Route: 048
     Dates: start: 20160330, end: 20160418
  27. DEXAMETHASON [Concomitant]
     Active Substance: DEXAMETHASONE
     Indication: NAUSEA
     Dosage: 8 MILLIGRAM, PER CYCLE, 2 WEEK
     Route: 042
     Dates: start: 20151123
  28. BEVACIZUMAB. [Suspect]
     Active Substance: BEVACIZUMAB
     Indication: COLON CANCER METASTATIC
     Dosage: 850 MILLIGRAM, 2 WEEKS
     Route: 042
     Dates: start: 20151123
  29. CLEXANE [Concomitant]
     Active Substance: ENOXAPARIN SODIUM
     Indication: THROMBOSIS PROPHYLAXIS
     Dosage: 40 MILLIGRAM, ONCE A DAY
     Route: 058
     Dates: start: 20151026, end: 20151204
  30. CLEXANE [Concomitant]
     Active Substance: ENOXAPARIN SODIUM
     Dosage: 40 MILLIGRAM, ONCE A DAY
     Route: 058
     Dates: start: 20160331, end: 20160419
  31. OXALIPLATIN. [Suspect]
     Active Substance: OXALIPLATIN
     Indication: COLORECTAL CANCER
     Dosage: 135.15 MILLIGRAM, 2 WEEK
     Route: 042
     Dates: start: 20160314
  32. BEVACIZUMAB. [Suspect]
     Active Substance: BEVACIZUMAB
     Dosage: 255 MILLIGRAM, 2 WEEK
     Route: 042
     Dates: start: 20151221
  33. FLUOROURACIL. [Suspect]
     Active Substance: FLUOROURACIL
     Dosage: 1908 MILLIGRAM
     Route: 042
     Dates: start: 20160329
  34. NOVALGIN (METAMIZOLE SODIUM) [Concomitant]
     Active Substance: METAMIZOLE SODIUM
     Dosage: 30 GTT DROPS
     Route: 048
     Dates: start: 20151207
  35. OMEPRAZOL [Concomitant]
     Active Substance: OMEPRAZOLE
     Dosage: 40 MILLIGRAM, ONCE A DAY
     Route: 048
     Dates: start: 20160418
  36. ASPIRIN. [Concomitant]
     Active Substance: ASPIRIN
     Indication: CEREBROVASCULAR ACCIDENT PROPHYLAXIS
     Dosage: 100 MILLIGRAM, ONCE A DAY
     Route: 048
     Dates: start: 20151123

REACTIONS (12)
  - Febrile infection [Recovering/Resolving]
  - Hypertension [Recovered/Resolved]
  - Vomiting [Recovered/Resolved]
  - Cardiomyopathy [Recovering/Resolving]
  - Overdose [Unknown]
  - Urosepsis [Recovered/Resolved]
  - Pyrexia [Unknown]
  - Cardiac failure [Recovering/Resolving]
  - Pneumonia [Recovered/Resolved]
  - Stress cardiomyopathy [Recovering/Resolving]
  - General physical health deterioration [Unknown]
  - Nausea [Recovered/Resolved]

NARRATIVE: CASE EVENT DATE: 20151123
